FAERS Safety Report 4637273-6 (Version None)
Quarter: 2005Q2

REPORT INFORMATION
  Report Type: 
  Country: None (occurrence: None)
  Receive Date: 20050418
  Receipt Date: 20050406
  Transmission Date: 20051028
  Serious: Yes (Hospitalization, Other)
  Sender: FDA-Public Use
  Company Number: AU-JNJFOC-20050304277

PATIENT
  Sex: Female

DRUGS (3)
  1. REMICADE [Suspect]
     Route: 042
  2. PARACETAMOL [Concomitant]
  3. CLARITIN [Concomitant]

REACTIONS (7)
  - DYSPNOEA [None]
  - EMOTIONAL DISTRESS [None]
  - HYPERTENSION [None]
  - NAUSEA [None]
  - PHOTOSENSITIVITY REACTION [None]
  - TACHYCARDIA [None]
  - VOMITING [None]
